FAERS Safety Report 25964568 (Version 1)
Quarter: 2025Q4

REPORT INFORMATION
  Report Type: Spontaneous
  Country: CN (occurrence: CN)
  Receive Date: 20251027
  Receipt Date: 20251027
  Transmission Date: 20260118
  Serious: Yes (Other)
  Sender: UCB
  Company Number: CN-NEUROGEN (ZHUHAI) PHARMA CO., LTD.-2025NG06756

PATIENT
  Age: 42 Year
  Weight: 65 kg

DRUGS (1)
  1. VIMPAT [Suspect]
     Active Substance: LACOSAMIDE
     Indication: Epilepsy
     Dosage: 50 MILLIGRAM, 2X/DAY (BID)

REACTIONS (3)
  - Tricuspid valve incompetence [Unknown]
  - Supraventricular extrasystoles [Not Recovered/Not Resolved]
  - Diastolic dysfunction [Not Recovered/Not Resolved]
